FAERS Safety Report 11236225 (Version 2)
Quarter: 2015Q3

REPORT INFORMATION
  Report Type: Report from Study
  Country: DE (occurrence: DE)
  Receive Date: 20150702
  Receipt Date: 20150817
  Transmission Date: 20151125
  Serious: Yes (Hospitalization)
  Sender: FDA-Public Use
  Company Number: DE-ABBVIE-15P-062-1393926-00

PATIENT
  Sex: Male

DRUGS (2)
  1. SEROQUEL [Concomitant]
     Active Substance: QUETIAPINE FUMARATE
     Indication: PRODUCT USED FOR UNKNOWN INDICATION
  2. DUODOPA [Suspect]
     Active Substance: CARBIDOPA\LEVODOPA
     Indication: PARKINSON^S DISEASE
     Dosage: 6:00 6.2ML; 6:30-21:00 8.2ML/H, MD 6.5 MLCRD 7.5 ML/HCRN 4.5 ML/HED 5.2 ML
     Route: 050
     Dates: start: 20080902

REACTIONS (6)
  - Poor quality sleep [Not Recovered/Not Resolved]
  - Parkinsonism [Not Recovered/Not Resolved]
  - Device dislocation [Unknown]
  - Delusion [Not Recovered/Not Resolved]
  - Illusion [Not Recovered/Not Resolved]
  - Hallucination [Unknown]
